FAERS Safety Report 21516460 (Version 2)
Quarter: 2022Q4

REPORT INFORMATION
  Report Type: Other
  Country: CN (occurrence: None)
  Receive Date: 20221027
  Receipt Date: 20221215
  Transmission Date: 20230113
  Serious: Yes (Other)
  Sender: FDA-Public Use
  Company Number: CN-ROCHE-3204832

PATIENT
  Age: 54 Year
  Sex: Female
  Weight: 52 kg

DRUGS (1)
  1. ALECENSA [Suspect]
     Active Substance: ALECTINIB HYDROCHLORIDE
     Indication: Non-small cell lung cancer metastatic
     Dosage: 150MG*224CAPSULES(56CAPSULE*4BOX)
     Route: 048
     Dates: start: 20220214

REACTIONS (4)
  - Myocardial necrosis marker increased [Not Recovered/Not Resolved]
  - Lipids increased [Not Recovered/Not Resolved]
  - Hepatic function abnormal [Not Recovered/Not Resolved]
  - Palpitations [Not Recovered/Not Resolved]

NARRATIVE: CASE EVENT DATE: 20220601
